FAERS Safety Report 7669072-5 (Version None)
Quarter: 2011Q3

REPORT INFORMATION
  Report Type: 
  Country: None (occurrence: None)
  Receive Date: 20110808
  Receipt Date: 20110727
  Transmission Date: 20111222
  Serious: Yes (Hospitalization, Other)
  Sender: FDA-Public Use
  Company Number: US-BAYER-201033165NA

PATIENT
  Age: 18 Year
  Sex: Female
  Weight: 95 kg

DRUGS (9)
  1. ALBUTEROL INHALER [Concomitant]
     Indication: ASTHMA
     Dosage: UNK UNK, PRN
  2. QVAR 40 [Concomitant]
     Dosage: 1 PUFF(S), BID
  3. SULFAMETHOXAZOLE AND TRIMETHOPRIM [Concomitant]
     Dosage: UNK
     Dates: start: 20090701
  4. OXYCODONE HCL AND ACETAMINOPHEN [Concomitant]
     Indication: PAIN
     Dosage: UNK UNK, PRN
     Route: 048
  5. METFORMIN HCL [Concomitant]
     Indication: WEIGHT DECREASED
     Dosage: 500 MG, QD
     Route: 048
  6. MINOCYCLINE HCL [Concomitant]
     Dosage: 100 MG, QD
     Route: 048
  7. YAZ [Suspect]
     Dosage: UNK UNK, QD
     Route: 048
     Dates: start: 20080911, end: 20090101
  8. DOXYCYCLINE HYCLATE [Concomitant]
     Dosage: UNK
     Dates: start: 20090701
  9. YASMIN [Suspect]
     Dosage: UNK
     Dates: start: 20080911, end: 20090101

REACTIONS (3)
  - CHOLECYSTITIS CHRONIC [None]
  - CHOLELITHIASIS [None]
  - PAIN [None]
